FAERS Safety Report 14488047 (Version 1)
Quarter: 2018Q1

REPORT INFORMATION
  Report Type: Spontaneous
  Country: NL (occurrence: NL)
  Receive Date: 20180205
  Receipt Date: 20180205
  Transmission Date: 20180509
  Serious: Yes (Life-Threatening)
  Sender: FDA-Public Use
  Company Number: NL-TEVA-2018-NL-851611

PATIENT
  Age: 63 Year
  Sex: Female
  Weight: 89 kg

DRUGS (9)
  1. LERCANIDIPINE [Concomitant]
     Active Substance: LERCANIDIPINE
     Dosage: 1 DD 10MG
  2. LANTUS [Concomitant]
     Active Substance: INSULIN GLARGINE
  3. DOXYCYCLINE TABLET, 100 MG (MILLIGRAM) [Suspect]
     Active Substance: DOXYCYCLINE
     Indication: PNEUMONIA LEGIONELLA
     Dosage: DAY 1 200MG AND DAY 2 TO 7 100MG
     Route: 065
     Dates: start: 20171207
  4. METFORMINE [Concomitant]
     Active Substance: METFORMIN HYDROCHLORIDE
     Dosage: 1 DD 500MG
  5. LISINOPRIL. [Concomitant]
     Active Substance: LISINOPRIL
     Dosage: 1DD20MG
  6. FUROSEMIDE. [Concomitant]
     Active Substance: FUROSEMIDE
     Dosage: 1 DD 40MG
  7. SODIUM BICARBONATE CAPSULE 2 DD 500MG [Concomitant]
     Dosage: 2 DD 500MG
  8. SIMVASTATINE [Concomitant]
     Active Substance: SIMVASTATIN
     Dosage: 1 DD 20MG
  9. ALFACALCIDOL CAPSULE 0,25MCG [Concomitant]
     Dosage: 3X PER WEEK 0,25MCG

REACTIONS (1)
  - Vertigo [Recovered/Resolved]

NARRATIVE: CASE EVENT DATE: 20171207
